FAERS Safety Report 8099920-9 (Version None)
Quarter: 2012Q1

REPORT INFORMATION
  Report Type: 
  Country: None (occurrence: None)
  Receive Date: 20120129
  Receipt Date: 20111118
  Transmission Date: 20120608
  Serious: No
  Sender: FDA-Public Use
  Company Number: US-ABBOTT-11P-163-0875786-00

PATIENT
  Age: 30 Year
  Sex: Female

DRUGS (4)
  1. PAMELOR [Concomitant]
     Route: 048
  2. HUMIRA [Suspect]
     Indication: CROHN'S DISEASE
     Dates: start: 20100301
  3. PAMELOR [Concomitant]
     Indication: DEPRESSION
  4. RESTERIL [Concomitant]
     Indication: INSOMNIA
     Dosage: AT BEDTIME

REACTIONS (2)
  - BREAST MASS [None]
  - DEPRESSION [None]
